FAERS Safety Report 24265725 (Version 2)
Quarter: 2024Q4

REPORT INFORMATION
  Report Type: Spontaneous
  Country: JP (occurrence: JP)
  Receive Date: 20240830
  Receipt Date: 20241022
  Transmission Date: 20250114
  Serious: Yes (Other)
  Sender: GLAXOSMITHKLINE
  Company Number: JP-GSKJP-JP2024JPN090189AA

PATIENT

DRUGS (5)
  1. DAPRODUSTAT [Suspect]
     Active Substance: DAPRODUSTAT
     Indication: Nephrogenic anaemia
     Dosage: 2 MG, 1D
     Route: 048
     Dates: start: 20240224
  2. CALCIUM POLYSTYRENE SULFONATE [Concomitant]
     Active Substance: CALCIUM POLYSTYRENE SULFONATE
     Indication: Chronic kidney disease
     Dosage: UNK, TID
     Route: 048
  3. OLMESARTAN [Concomitant]
     Active Substance: OLMESARTAN
     Indication: Hypertension
     Dosage: 20 MG, 1D
     Route: 048
     Dates: start: 20231124
  4. LASIX [Concomitant]
     Active Substance: FUROSEMIDE
     Indication: Oedema due to cardiac disease
     Dosage: 20 MG, 1D
     Route: 048
     Dates: start: 20231124, end: 20240104
  5. MAGNESIUM OXIDE [Concomitant]
     Active Substance: MAGNESIUM OXIDE
     Indication: Constipation
     Dosage: 330 MG, TID
     Route: 048
     Dates: start: 20240115, end: 20240822

REACTIONS (3)
  - Lung neoplasm malignant [Not Recovered/Not Resolved]
  - Dysphagia [Unknown]
  - Pyrexia [Unknown]

NARRATIVE: CASE EVENT DATE: 20240510
